FAERS Safety Report 6859096-X (Version None)
Quarter: 2010Q3

REPORT INFORMATION
  Report Type: 
  Country: None (occurrence: None)
  Receive Date: 20100719
  Receipt Date: 20080318
  Transmission Date: 20110219
  Serious: Yes (Other)
  Sender: FDA-Public Use
  Company Number: US-PFIZER INC-2008017131

PATIENT
  Sex: Female
  Weight: 72.6 kg

DRUGS (9)
  1. CHANTIX [Suspect]
     Indication: SMOKING CESSATION THERAPY
     Route: 048
     Dates: start: 20071206, end: 20080214
  2. ANTIDEPRESSANTS [Suspect]
     Indication: DEPRESSION
     Dates: start: 20080201, end: 20080220
  3. PROZAC [Suspect]
     Dates: start: 20080201, end: 20080201
  4. CALCIUM [Concomitant]
  5. MULTI-VITAMINS [Concomitant]
  6. PREMARIN [Concomitant]
  7. CELEBREX [Concomitant]
  8. GLUCOSAMINE [Concomitant]
  9. LISINOPRIL [Concomitant]

REACTIONS (9)
  - CHANGE OF BOWEL HABIT [None]
  - DEPRESSIVE SYMPTOM [None]
  - DIZZINESS [None]
  - DRY MOUTH [None]
  - HOT FLUSH [None]
  - INSOMNIA [None]
  - SOMNOLENCE [None]
  - SUICIDAL IDEATION [None]
  - WEIGHT INCREASED [None]
